FAERS Safety Report 7594199-6 (Version None)
Quarter: 2011Q3

REPORT INFORMATION
  Report Type: 
  Country: None (occurrence: None)
  Receive Date: 20110706
  Receipt Date: 20110630
  Transmission Date: 20111222
  Serious: Yes (Hospitalization)
  Sender: FDA-Public Use
  Company Number: JP-ABBOTT-11P-087-0724708-00

PATIENT
  Sex: Male

DRUGS (1)
  1. HUMIRA [Suspect]
     Indication: CROHN'S DISEASE
     Dosage: (160MG)
     Route: 058
     Dates: start: 20110502

REACTIONS (7)
  - COMPUTERISED TOMOGRAM ABDOMEN ABNORMAL [None]
  - ERYTHEMA [None]
  - PYREXIA [None]
  - IMMUNOSUPPRESSION [None]
  - PAIN OF SKIN [None]
  - ABSCESS [None]
  - ABDOMINAL ADHESIONS [None]
